FAERS Safety Report 25078093 (Version 1)
Quarter: 2025Q1

REPORT INFORMATION
  Report Type: Report from Study
  Country: EG (occurrence: EG)
  Receive Date: 20250314
  Receipt Date: 20250314
  Transmission Date: 20250408
  Serious: No
  Sender: SANDOZ
  Company Number: EG-SANDOZ-SDZ2025EG014921

PATIENT
  Sex: Female

DRUGS (1)
  1. OMNITROPE [Suspect]
     Active Substance: SOMATROPIN
     Indication: Short stature
     Dosage: UNK, QD (OMNITROPE 10 MG)
     Route: 058
     Dates: start: 202302

REACTIONS (4)
  - Expired device used [Unknown]
  - Drug administered in wrong device [Unknown]
  - Incorrect dose administered by device [Unknown]
  - Device issue [Unknown]
